FAERS Safety Report 10235591 (Version 1)
Quarter: 2014Q2

REPORT INFORMATION
  Report Type: Report from Study
  Country: JP (occurrence: JP)
  Receive Date: 20140613
  Receipt Date: 20140613
  Transmission Date: 20141212
  Serious: Yes (Hospitalization)
  Sender: FDA-Public Use
  Company Number: JP-SA-2014SA074932

PATIENT
  Age: 52 Year
  Sex: Male
  Weight: 69.1 kg

DRUGS (9)
  1. THYMOGLOBULINE [Suspect]
     Indication: APLASTIC ANAEMIA
     Route: 042
     Dates: start: 20130605, end: 20130609
  2. ANTI-THYMOCYTE GLOBULIN/ANTI-LYMPHOCYTE GLOBULIN [Concomitant]
     Indication: APLASTIC ANAEMIA
     Dates: start: 20130529
  3. NEORAL [Concomitant]
     Indication: APLASTIC ANAEMIA
     Dates: start: 20130529
  4. BACTRAMIN [Concomitant]
     Indication: ANTIFUNGAL PROPHYLAXIS
     Dates: start: 20130530
  5. ITRACONAZOLE [Concomitant]
     Indication: ANTIFUNGAL PROPHYLAXIS
     Dates: start: 20130530
  6. PARIET [Concomitant]
     Indication: PEPTIC ULCER
     Dates: start: 20130530
  7. NEUTROGIN [Concomitant]
     Indication: APLASTIC ANAEMIA
     Dates: start: 20130610, end: 20130720
  8. PREDNISOLONE [Concomitant]
     Indication: PROPHYLAXIS
     Dates: start: 20130610, end: 20130701
  9. CRAVIT [Concomitant]
     Indication: INFECTION PROPHYLAXIS
     Dates: start: 20130612, end: 20130623

REACTIONS (2)
  - Febrile neutropenia [Recovered/Resolved]
  - Cytomegalovirus infection [Recovered/Resolved]
